FAERS Safety Report 5680105-8 (Version None)
Quarter: 2008Q1

REPORT INFORMATION
  Report Type: 
  Country: None (occurrence: None)
  Receive Date: 20080326
  Receipt Date: 20080311
  Transmission Date: 20080703
  Serious: Yes (Other)
  Sender: FDA-Public Use
  Company Number: US-BAYER-200814243NA

PATIENT
  Age: 68 Year
  Sex: Female
  Weight: 73 kg

DRUGS (7)
  1. AVELOX [Suspect]
     Indication: SINUSITIS
     Dosage: TOTAL DAILY DOSE: 400 MG  UNIT DOSE: 400 MG
     Route: 048
     Dates: start: 20070411, end: 20070417
  2. AVELOX [Suspect]
     Dosage: TOTAL DAILY DOSE: 400 MG  UNIT DOSE: 400 MG
     Route: 048
     Dates: start: 20080111, end: 20080118
  3. DIOVAN [Concomitant]
     Dosage: TOTAL DAILY DOSE: 80 MG
  4. HYDROCHLOROTHIAZIDE [Concomitant]
     Dosage: TOTAL DAILY DOSE: 12.5 MG
  5. SYNTHROID [Concomitant]
     Dosage: TOTAL DAILY DOSE: 0.075 MG
  6. ATENOLOL [Concomitant]
     Dosage: TOTAL DAILY DOSE: 25 MG
  7. PRAVACHOL [Concomitant]
     Dosage: TOTAL DAILY DOSE: 20 MG

REACTIONS (4)
  - ARTHRALGIA [None]
  - OEDEMA PERIPHERAL [None]
  - TENDON RUPTURE [None]
  - WEIGHT BEARING DIFFICULTY [None]
